FAERS Safety Report 7894127-X (Version None)
Quarter: 2011Q4

REPORT INFORMATION
  Report Type: 
  Country: None (occurrence: None)
  Receive Date: 20111104
  Receipt Date: 20111031
  Transmission Date: 20120403
  Serious: No
  Sender: FDA-Public Use
  Company Number: US-PFIZER INC-2011266155

PATIENT
  Sex: Female
  Weight: 61.224 kg

DRUGS (1)
  1. ZITHROMAX [Suspect]
     Indication: OROPHARYNGEAL PAIN
     Dosage: UNK
     Route: 048
     Dates: start: 20111027, end: 20111029

REACTIONS (2)
  - RASH [None]
  - PAIN [None]
